FAERS Safety Report 25260673 (Version 2)
Quarter: 2025Q4

REPORT INFORMATION
  Report Type: Spontaneous
  Country: US (occurrence: US)
  Receive Date: 20250501
  Receipt Date: 20251007
  Transmission Date: 20260118
  Serious: Yes (Hospitalization, Other)
  Sender: NOVO NORDISK
  Company Number: US-NOVOPROD-1408105

PATIENT
  Age: 77 Year
  Sex: Male
  Weight: 84.807 kg

DRUGS (27)
  1. OZEMPIC [Suspect]
     Active Substance: SEMAGLUTIDE
     Indication: Type 2 diabetes mellitus
     Dosage: 0.50 MG, QW
     Dates: start: 202110, end: 20220119
  2. OZEMPIC [Suspect]
     Active Substance: SEMAGLUTIDE
     Indication: Type 2 diabetes mellitus
     Dosage: 1 MG, QW
     Dates: start: 20220119, end: 20230721
  3. EZETIMIBE [Concomitant]
     Active Substance: EZETIMIBE
     Indication: Hyperlipidaemia
     Dosage: UNK
     Dates: start: 20210503, end: 20240624
  4. METFORMIN [Concomitant]
     Active Substance: METFORMIN HYDROCHLORIDE
     Indication: Type 2 diabetes mellitus
     Dosage: 500 MG
     Dates: start: 20140103, end: 20240715
  5. METFORMIN [Concomitant]
     Active Substance: METFORMIN HYDROCHLORIDE
     Dosage: 1000 MG
     Dates: start: 20240715
  6. ATORVASTATIN [Concomitant]
     Active Substance: ATORVASTATIN
     Indication: Hyperlipidaemia
     Dosage: UNK
     Dates: start: 20170102
  7. FENOFIBRATE [Concomitant]
     Active Substance: FENOFIBRATE
     Indication: Hyperlipidaemia
     Dosage: UNK
     Dates: start: 20170321, end: 20240715
  8. ALFUZOSIN [Concomitant]
     Active Substance: ALFUZOSIN
     Indication: Urinary retention
     Dosage: UNK
     Dates: start: 20150903
  9. ICOSAPENT ETHYL [Concomitant]
     Active Substance: ICOSAPENT ETHYL
     Indication: Hyperlipidaemia
     Dosage: UNK
     Dates: start: 20220119, end: 20220719
  10. LEVOTHYROXINE [Concomitant]
     Active Substance: LEVOTHYROXINE
     Indication: Hypothyroidism
     Dosage: UNK
     Dates: start: 20221128
  11. METOPROLOL SUCCINATE [Concomitant]
     Active Substance: METOPROLOL SUCCINATE
     Indication: Heart rate irregular
     Dosage: UNK
     Dates: start: 20171004, end: 20240715
  12. JARDIANCE [Concomitant]
     Active Substance: EMPAGLIFLOZIN
     Indication: Type 2 diabetes mellitus
     Dosage: UNK
     Dates: start: 20210420
  13. AMLODIPINE [Concomitant]
     Active Substance: AMLODIPINE BESYLATE
     Indication: Hypertension
     Dosage: UNK
     Dates: start: 20210601, end: 20220601
  14. SITAGLIPTIN [Concomitant]
     Active Substance: SITAGLIPTIN
     Indication: Type 2 diabetes mellitus
     Dosage: UNK
     Dates: start: 20220205
  15. ASPIRIN [Concomitant]
     Active Substance: ASPIRIN
     Indication: Cardiovascular event prophylaxis
     Dosage: UNK
     Dates: start: 20200617, end: 20221217
  16. BIOTIN [Concomitant]
     Active Substance: BIOTIN
     Indication: Routine health maintenance
     Dosage: UNK
     Dates: start: 20211006, end: 20221206
  17. PYRIDOXINE [Concomitant]
     Active Substance: PYRIDOXINE
     Indication: Routine health maintenance
     Dosage: UNK
     Dates: start: 20210105, end: 20231109
  18. PRASTERONE [Concomitant]
     Active Substance: PRASTERONE
     Indication: Routine health maintenance
     Dosage: UNK
     Dates: start: 20220517, end: 20220817
  19. CYANOCOBALAMIN [Concomitant]
     Active Substance: CYANOCOBALAMIN
     Indication: Vitamin B12 deficiency
     Dosage: UNK
     Dates: start: 20210601, end: 20221205
  20. MAGNESIUM OXIDE [Concomitant]
     Active Substance: MAGNESIUM OXIDE
     Indication: Routine health maintenance
     Dosage: UNK
     Dates: start: 20210426, end: 20211026
  21. FERROUS GLUCONATE [Concomitant]
     Active Substance: FERROUS GLUCONATE
     Indication: Iron deficiency
     Dosage: UNK
     Dates: start: 20210307, end: 20220907
  22. VITAMIN C [Concomitant]
     Active Substance: ASCORBIC ACID
     Indication: Routine health maintenance
     Dosage: UNK
     Dates: start: 20210307, end: 20240715
  23. ZINC [Concomitant]
     Active Substance: ZINC
     Indication: Routine health maintenance
     Dosage: UNK
     Dates: start: 20210505
  24. VITAMINS NOS [Concomitant]
     Active Substance: VITAMINS
     Indication: Routine health maintenance
     Dosage: UNK
     Dates: start: 20210104, end: 20220104
  25. VITAMIN D2 [Concomitant]
     Active Substance: ERGOCALCIFEROL
     Indication: Routine health maintenance
     Dosage: UNK
     Dates: start: 20210606, end: 20240706
  26. BYDUREON BCISE [Concomitant]
     Active Substance: EXENATIDE
     Indication: Type 2 diabetes mellitus
     Dosage: 2 MG, QW
     Dates: start: 20170104, end: 202110
  27. ALOGLIPTIN BENZOATE [Concomitant]
     Active Substance: ALOGLIPTIN BENZOATE
     Indication: Type 2 diabetes mellitus
     Dosage: UNK
     Dates: start: 20231109

REACTIONS (3)
  - Intestinal obstruction [Recovered/Resolved]
  - Constipation [Recovered/Resolved]
  - Off label use [Unknown]

NARRATIVE: CASE EVENT DATE: 20211001
